FAERS Safety Report 13081016 (Version 2)
Quarter: 2017Q2

REPORT INFORMATION
  Report Type: Spontaneous
  Country: US (occurrence: US)
  Receive Date: 20170103
  Receipt Date: 20170424
  Transmission Date: 20170830
  Serious: No
  Sender: FDA-Public Use
  Company Number: US-PFIZER INC-2016598582

PATIENT
  Age: 5 Year
  Sex: Male

DRUGS (1)
  1. CHILDRENS ADVIL [Suspect]
     Active Substance: IBUPROFEN
     Dosage: 10 ML, UNK

REACTIONS (3)
  - Intentional product use issue [Unknown]
  - Decreased appetite [Unknown]
  - Somnolence [Unknown]
